FAERS Safety Report 9879740 (Version 2)
Quarter: 2014Q1

REPORT INFORMATION
  Report Type: Report from Study
  Country: US (occurrence: US)
  Receive Date: 20140206
  Receipt Date: 20140314
  Transmission Date: 20141002
  Serious: Yes (Death, Hospitalization, Other)
  Sender: FDA-Public Use
  Company Number: US-GILEAD-2014-0093764

PATIENT
  Age: 22 Year
  Sex: Male

DRUGS (19)
  1. AZTREONAM LYSINE [Suspect]
     Indication: CYSTIC FIBROSIS
     Dosage: 75 MG, TID
     Route: 055
     Dates: start: 20110607
  2. FAMOTIDINE [Concomitant]
     Indication: GASTROOESOPHAGEAL REFLUX DISEASE
     Dosage: 20 MG, BID
     Dates: start: 20110429
  3. CYPROHEPTADINE HYDROCHLORIDE [Concomitant]
     Indication: RHINITIS ALLERGIC
     Dosage: 4 MG, TID
     Dates: start: 20120224
  4. ZITHROMAX [Concomitant]
     Indication: CYSTIC FIBROSIS LUNG
     Dosage: 500 MG, UNK
     Dates: start: 20120224
  5. FLONASE                            /00908302/ [Concomitant]
     Indication: CYSTIC FIBROSIS LUNG
     Dosage: 2 DF, QD
     Route: 045
     Dates: start: 20120224
  6. ALBUTEROL SULFATE [Concomitant]
     Indication: CYSTIC FIBROSIS LUNG
     Dosage: 1 DF, TID
     Route: 055
     Dates: start: 20120224, end: 20130130
  7. ALBUTEROL SULFATE [Concomitant]
     Dosage: 1 NEBULIZED SOLUTION (DF), QID PRN
     Route: 055
  8. VENTOLIN HFA [Concomitant]
     Indication: CYSTIC FIBROSIS LUNG
     Dosage: 2 DF, PRN
     Route: 055
     Dates: start: 20120224
  9. CREON [Concomitant]
     Indication: PANCREATIC INSUFFICIENCY
     Dosage: 1 DF, UNK
     Route: 048
     Dates: start: 20120525
  10. CELEXA                             /00582602/ [Concomitant]
     Indication: ANXIETY DISORDER
     Dosage: 1 DF, QD
     Route: 048
     Dates: start: 20120921
  11. ZENPEP [Concomitant]
     Dosage: UNK DF, UNK
     Route: 048
  12. PULMOZYME [Concomitant]
     Dosage: 1 DF, BID
     Route: 055
  13. TOBI                               /00304202/ [Concomitant]
     Dosage: 1 DF, BID
     Route: 055
  14. SODIUM CHLORIDE [Concomitant]
     Dosage: UNK, PRN
     Route: 055
  15. CALCIUM ANTACID [Concomitant]
     Dosage: 500 MG, BID
     Route: 048
  16. FOSAMAX [Concomitant]
     Dosage: 70 MG, QD
     Route: 048
  17. SOURCECF PEDIATRIC [Concomitant]
     Dosage: 1 DF, BID
     Route: 048
  18. OXANDROLONE [Concomitant]
     Dosage: 10 MG, QD
     Route: 048
  19. FERROUS SULFATE [Concomitant]
     Dosage: 325 MG, TID
     Route: 048

REACTIONS (1)
  - Acute respiratory failure [Fatal]
